FAERS Safety Report 18180153 (Version 1)
Quarter: 2020Q3

REPORT INFORMATION
  Report Type: Spontaneous
  Country: NL (occurrence: NL)
  Receive Date: 20200821
  Receipt Date: 20200821
  Transmission Date: 20201103
  Serious: Yes (Other)
  Sender: FDA-Public Use
  Company Number: NL-TEVA-2020-NL-1816377

PATIENT
  Age: 57 Year
  Sex: Male

DRUGS (2)
  1. DICLOFENAC SODIUM TEVA 50 MG [Suspect]
     Active Substance: DICLOFENAC SODIUM
     Indication: PAIN IN EXTREMITY
     Route: 065
     Dates: start: 201909
  2. DICLOFENAC SODIUM TEVA 50 MG [Suspect]
     Active Substance: DICLOFENAC SODIUM
     Route: 065

REACTIONS (5)
  - Therapeutic product effect incomplete [Unknown]
  - Haematochezia [Recovering/Resolving]
  - Constipation [Recovering/Resolving]
  - Dyschezia [Recovering/Resolving]
  - Proctalgia [Recovered/Resolved]

NARRATIVE: CASE EVENT DATE: 202004
